FAERS Safety Report 9796061 (Version 1)
Quarter: 2014Q1

REPORT INFORMATION
  Report Type: Spontaneous
  Country: IT (occurrence: IT)
  Receive Date: 20140103
  Receipt Date: 20140103
  Transmission Date: 20141002
  Serious: Yes (Other)
  Sender: FDA-Public Use
  Company Number: IT-TEVA-452802ISR

PATIENT
  Age: 75 Year
  Sex: Male
  Weight: 65 kg

DRUGS (8)
  1. FLUOROURACILE TEVA [Suspect]
     Indication: COLON CANCER
     Dosage: 3280 MILLIGRAM DAILY;
     Route: 042
     Dates: start: 20120104, end: 20120329
  2. IRINOTECAN HOSPIRA [Suspect]
     Indication: COLON CANCER
     Dosage: 131 MILLIGRAM DAILY; CONCENTRATE FOR SOLUTION FOR INFUSION
     Route: 042
     Dates: start: 20120104, end: 20120329
  3. LEVOFOLENE [Suspect]
     Indication: COLON CANCER
     Dosage: 410 MILLIGRAM DAILY; POWDER FOR SOLUTION FOR INJECTION
     Route: 042
     Dates: start: 20120104, end: 20120329
  4. ATROPINA SOLFATO [Concomitant]
     Indication: PROPHYLAXIS AGAINST DIARRHOEA
     Dosage: .25 MILLIGRAM DAILY;
     Route: 058
     Dates: start: 20120104, end: 20120329
  5. RAMIPRIL [Concomitant]
     Indication: HYPERTENSION
     Dosage: 5 MILLIGRAM DAILY;
     Route: 048
     Dates: start: 20100315, end: 20120515
  6. ERBITUX [Concomitant]
     Indication: COLON CANCER
     Dosage: 410 MILLIGRAM DAILY;
     Route: 042
     Dates: start: 20120105, end: 20120405
  7. ZOFRAN [Concomitant]
     Indication: PROPHYLAXIS OF NAUSEA AND VOMITING
     Dosage: 8 MILLIGRAM DAILY;
     Route: 042
     Dates: start: 20120104, end: 20120329
  8. DESAMETASONE FOSFATO HOSPIRA [Concomitant]
     Indication: PROPHYLAXIS OF NAUSEA AND VOMITING
     Dosage: 8 MILLIGRAM DAILY;
     Route: 042
     Dates: start: 20120104, end: 20120329

REACTIONS (3)
  - Pulmonary embolism [Recovered/Resolved]
  - Deep vein thrombosis [Recovered/Resolved]
  - Oedema [Recovered/Resolved]
